FAERS Safety Report 9029341 (Version 1)
Quarter: 2013Q1

REPORT INFORMATION
  Report Type: Spontaneous
  Country: US (occurrence: US)
  Receive Date: 20130125
  Receipt Date: 20130125
  Transmission Date: 20140127
  Serious: Yes (Hospitalization)
  Sender: FDA-Public Use
  Company Number: US-SANOFI-AVENTIS-2013SA004061

PATIENT
  Age: 80 Year
  Sex: Female

DRUGS (2)
  1. PLAVIX [Suspect]
  2. COUMADIN [Suspect]

REACTIONS (4)
  - Pain in extremity [Unknown]
  - Haematemesis [Unknown]
  - Rectal haemorrhage [Unknown]
  - Gingival bleeding [Unknown]
